FAERS Safety Report 8493522-8 (Version None)
Quarter: 2012Q2

REPORT INFORMATION
  Report Type: 
  Country: None (occurrence: None)
  Receive Date: 20120402
  Receipt Date: 20081027
  Transmission Date: 20120825
  Serious: Yes (Other)
  Sender: FDA-Public Use
  Company Number: PHEH2008US09551

PATIENT
  Sex: Female

DRUGS (18)
  1. SYNTHROID [Concomitant]
  2. CYMBALTA [Concomitant]
  3. BUPROPION HYDROCHLORIDE [Concomitant]
  4. LYRICA [Concomitant]
  5. PLAVIX [Concomitant]
  6. JANUVIA [Concomitant]
  7. VICA FORTE [Concomitant]
  8. KLONOPIN [Concomitant]
  9. PRINIVIL [Concomitant]
  10. EXFORGE [Suspect]
     Dosage: 10/320 MG
  11. KLOR-CON [Concomitant]
  12. LIPITOR [Concomitant]
  13. DARVOCET-N (DEXTROPROPOXYPHENE NAPSILATE, PARACETAMOL) [Concomitant]
  14. PRILOSEC [Concomitant]
  15. BYSTOLIC [Concomitant]
  16. CYMBALTA [Concomitant]
  17. ZAROXOLYN [Concomitant]
  18. LISINOPRIL [Concomitant]

REACTIONS (2)
  - DEPRESSION [None]
  - OEDEMA PERIPHERAL [None]
